FAERS Safety Report 11173298 (Version 6)
Quarter: 2016Q2

REPORT INFORMATION
  Report Type: Report from Study
  Country: CA (occurrence: CA)
  Receive Date: 20150608
  Receipt Date: 20160506
  Transmission Date: 20160815
  Serious: Yes (Other)
  Sender: FDA-Public Use
  Company Number: PHHY2011CA112316

PATIENT
  Age: 84 Year
  Sex: Female

DRUGS (5)
  1. SANDOSTATIN LAR DEPOT [Suspect]
     Active Substance: OCTREOTIDE ACETATE
     Indication: NEUROENDOCRINE TUMOUR
     Dosage: 30 MG, QMO ( (EVERY 4 WEEKS))
     Route: 030
     Dates: start: 20010705
  2. SYNTHROID [Concomitant]
     Active Substance: LEVOTHYROXINE SODIUM
     Dosage: 88UG AND 100 UG, QD (FROM MONDAYS TO SATURDAYS AND IN SUNDAYS RESPECTIVELY)
     Route: 065
  3. SANDOSTATIN LAR DEPOT [Suspect]
     Active Substance: OCTREOTIDE ACETATE
     Dosage: 60 MG, QMO ( (EVERY 4 WEEKS))
     Route: 030
  4. SYNTHROID [Concomitant]
     Active Substance: LEVOTHYROXINE SODIUM
     Indication: PRODUCT USED FOR UNKNOWN INDICATION
     Dosage: 0.025 MG, UNK
     Route: 065
     Dates: start: 20140320
  5. SANDOSTATIN LAR DEPOT [Suspect]
     Active Substance: OCTREOTIDE ACETATE
     Dosage: 30 MG, QMO (EVERY 4 WEEKS)
     Route: 030

REACTIONS (15)
  - Laceration [Unknown]
  - Haemorrhage [Unknown]
  - Renal neoplasm [Unknown]
  - Dry skin [Unknown]
  - Thyroid disorder [Unknown]
  - Mass [Recovering/Resolving]
  - Neoplasm [Unknown]
  - Blood pressure increased [Unknown]
  - Fall [Unknown]
  - Skin abrasion [Unknown]
  - Pigmentation disorder [Unknown]
  - Fatigue [Unknown]
  - Blood pressure systolic increased [Unknown]
  - Injection site pain [Not Recovered/Not Resolved]
  - Pain [Not Recovered/Not Resolved]

NARRATIVE: CASE EVENT DATE: 20160320
